FAERS Safety Report 9945728 (Version 1)
Quarter: 2014Q1

REPORT INFORMATION
  Report Type: Report from Study
  Country: US (occurrence: US)
  Receive Date: 20140303
  Receipt Date: 20140303
  Transmission Date: 20141002
  Serious: No
  Sender: FDA-Public Use
  Company Number: US-ABBVIE-13P-163-1050898-00

PATIENT
  Age: 71 Year
  Sex: Female

DRUGS (5)
  1. HUMIRA [Suspect]
     Indication: PSORIASIS
  2. CRESTOR [Concomitant]
     Indication: BLOOD CHOLESTEROL
     Dosage: 5 MG DAILY
  3. CITALOPRAM [Concomitant]
     Indication: DEPRESSION
     Dosage: 10 MG DAILY
  4. LISINOPRIL [Concomitant]
     Indication: BLOOD PRESSURE
     Dosage: 10 MG DAILY
  5. DORZOLAMIDE/TIMOLOL [Concomitant]
     Indication: GLAUCOMA
     Dosage: EYE DROPS DAILY

REACTIONS (1)
  - Myalgia [Not Recovered/Not Resolved]
